FAERS Safety Report 14154926 (Version 1)
Quarter: 2017Q4

REPORT INFORMATION
  Report Type: Spontaneous
  Country: US (occurrence: None)
  Receive Date: 20171102
  Receipt Date: 20171102
  Transmission Date: 20180321
  Serious: Yes (Other)
  Sender: FDA-Public Use
  Company Number: None

PATIENT
  Age: 51 Year
  Sex: Male

DRUGS (1)
  1. OLD SPICE RED ZONE COLLECTION SWAGGER [Suspect]
     Active Substance: ALUMINUM ZIRCONIUM OCTACHLOROHYDREX GLY\ALUMINUM ZIRCONIUM TRICHLOROHYDREX GLY
     Dosage: USED ONCE OR TWICE TOPICAL
     Route: 061

REACTIONS (7)
  - Axillary mass [None]
  - Sweat gland disorder [None]
  - Impaired healing [None]
  - Papule [None]
  - Pruritus [None]
  - Postoperative wound infection [None]
  - Skin infection [None]

NARRATIVE: CASE EVENT DATE: 2017
